FAERS Safety Report 6570880-2 (Version None)
Quarter: 2010Q1

REPORT INFORMATION
  Report Type: 
  Country: None (occurrence: None)
  Receive Date: 20100204
  Receipt Date: 20100202
  Transmission Date: 20100710
  Serious: Yes (Hospitalization, Other)
  Sender: FDA-Public Use
  Company Number: CH-WYE-G05486810

PATIENT
  Age: 33 Year
  Sex: Female

DRUGS (1)
  1. EFFEXOR [Suspect]
     Dosage: DOSE AND FREQUENCY UNKNOWN, PROBABLE INTAKE OF 300 MG AS ABUSE
     Route: 048

REACTIONS (2)
  - DRUG ABUSE [None]
  - RHABDOMYOLYSIS [None]
